FAERS Safety Report 5121266-9 (Version None)
Quarter: 2006Q4

REPORT INFORMATION
  Report Type: 
  Country: None (occurrence: None)
  Receive Date: 20061005
  Receipt Date: 20060926
  Transmission Date: 20070319
  Serious: Yes (Hospitalization)
  Sender: FDA-Public Use
  Company Number: DE-ABBOTT-06P-062-0345053-00

PATIENT

DRUGS (1)
  1. KLACID [Suspect]
     Indication: SUICIDE ATTEMPT
     Route: 048
     Dates: start: 20060926, end: 20060926

REACTIONS (2)
  - NAUSEA [None]
  - SUICIDE ATTEMPT [None]
